FAERS Safety Report 17000327 (Version 3)
Quarter: 2021Q3

REPORT INFORMATION
  Report Type: Report from Study
  Country: JP (occurrence: JP)
  Receive Date: 20191106
  Receipt Date: 20210913
  Transmission Date: 20211014
  Serious: Yes (Hospitalization, Disabling, Other)
  Sender: FDA-Public Use
  Company Number: JP-RECORDATI RARE DISEASES INC.-JP-R13005-19-00241

PATIENT
  Age: 2 Day
  Sex: Male
  Weight: 1.08 kg

DRUGS (13)
  1. CALCICOL [Concomitant]
     Active Substance: CALCIUM GLUCONATE
     Indication: HYPOCALCAEMIA
     Dosage: UNK
     Route: 042
     Dates: start: 20190607, end: 20190612
  2. GLUCOSE [Concomitant]
     Active Substance: DEXTROSE
     Indication: NUTRITIONAL SUPPLEMENTATION
     Dosage: UNK
     Route: 042
     Dates: start: 20190607, end: 20190609
  3. PLEAMIN P [Concomitant]
     Indication: NUTRITIONAL SUPPLEMENTATION
     Dosage: UNK
     Route: 042
     Dates: start: 20190608, end: 20190612
  4. LASIX [Concomitant]
     Active Substance: FUROSEMIDE
     Indication: BLOOD PRESSURE MANAGEMENT
     Dosage: UNK
     Route: 042
     Dates: start: 20190608, end: 20190611
  5. NOBELBAR [Concomitant]
     Active Substance: PHENOBARBITAL SODIUM
     Indication: INTRAVENTRICULAR HAEMORRHAGE
     Dosage: UNK
     Route: 042
     Dates: start: 20190609, end: 20190609
  6. NEOPROFEN [Suspect]
     Active Substance: IBUPROFEN LYSINE
     Indication: PATENT DUCTUS ARTERIOSUS
     Dosage: 10 MILLIGRAM/KILOGRAM, QD
     Route: 042
     Dates: start: 20190608, end: 20190608
  7. FENTANYL. [Concomitant]
     Active Substance: FENTANYL
     Indication: SEDATION
     Dosage: UNK
     Route: 042
     Dates: start: 20190607, end: 20190611
  8. LASIX [Concomitant]
     Active Substance: FUROSEMIDE
     Indication: POLYURIA
  9. MEYLON [Concomitant]
     Active Substance: SODIUM BICARBONATE
     Indication: METABOLIC ACIDOSIS
     Dosage: UNK
     Route: 042
     Dates: start: 20190609, end: 20190609
  10. KAYTWON [Concomitant]
     Indication: VITAMIN SUPPLEMENTATION
     Dosage: UNK
     Route: 042
     Dates: start: 20190607, end: 20190609
  11. NEOPROFEN [Suspect]
     Active Substance: IBUPROFEN LYSINE
     Dosage: 5 MILLIGRAM/KILOGRAM
     Route: 042
     Dates: start: 20190609, end: 20190609
  12. ISOTONIC SODIUM CHLORIDE SOLUTION [Concomitant]
     Active Substance: SODIUM CHLORIDE
     Indication: PRODUCT USED FOR UNKNOWN INDICATION
     Dosage: UNK
     Route: 013
     Dates: start: 20190607, end: 20190612
  13. MULTAMIN [Concomitant]
     Active Substance: VITAMINS
     Indication: VITAMIN SUPPLEMENTATION
     Dosage: UNK
     Route: 042
     Dates: start: 20190608, end: 20190612

REACTIONS (8)
  - Blood creatinine increased [Recovered/Resolved]
  - Intraventricular haemorrhage [Unknown]
  - White blood cell count decreased [Recovering/Resolving]
  - Respiratory failure [Unknown]
  - Posthaemorrhagic hydrocephalus [Unknown]
  - Hypoglycaemia [Recovered/Resolved]
  - Platelet count decreased [Unknown]
  - Bacteraemia [Recovered/Resolved]

NARRATIVE: CASE EVENT DATE: 20190609
